FAERS Safety Report 8180226-4 (Version None)
Quarter: 2012Q1

REPORT INFORMATION
  Report Type: 
  Country: None (occurrence: None)
  Receive Date: 20120302
  Receipt Date: 20120217
  Transmission Date: 20120608
  Serious: Yes (Congenital Anomaly)
  Sender: FDA-Public Use
  Company Number: US-MYLANLABS-2012S1003924

PATIENT

DRUGS (3)
  1. CARBAMAZEPINE [Suspect]
     Dosage: 400MG AT 11 WEEKS
     Route: 064
  2. VALPROIC ACID [Suspect]
     Dosage: 500MG AT LAST MENSTRUAL PERIOD
     Route: 064
  3. PHENYTOIN [Suspect]
     Dosage: 200MG AT 10 WEEKS
     Route: 064

REACTIONS (5)
  - KIDNEY MALFORMATION [None]
  - SINGLE FUNCTIONAL KIDNEY [None]
  - CONGENITAL URETERIC ANOMALY [None]
  - MATERNAL EXPOSURE DURING PREGNANCY [None]
  - CRYPTORCHISM [None]
